FAERS Safety Report 6288081-4 (Version None)
Quarter: 2009Q3

REPORT INFORMATION
  Report Type: 
  Country: None (occurrence: None)
  Receive Date: 20090729
  Receipt Date: 20090724
  Transmission Date: 20100115
  Serious: Yes (Life-Threatening, Hospitalization)
  Sender: FDA-Public Use
  Company Number: PHHY2009JP22987

PATIENT
  Age: 77 Year
  Sex: Female

DRUGS (4)
  1. VOLTAREN [Suspect]
     Indication: BACK PAIN
     Dosage: 25 MG/DAY
     Route: 054
     Dates: start: 20090607, end: 20090608
  2. DIOVAN [Concomitant]
     Dosage: 40 MG, UNK
     Route: 048
     Dates: start: 20090401
  3. MEDICON [Concomitant]
     Dosage: UNK
     Route: 048
     Dates: start: 20090527
  4. CLARITIN [Concomitant]
     Dosage: UNK
     Route: 048
     Dates: start: 20090527

REACTIONS (6)
  - BLOOD FIBRINOGEN INCREASED [None]
  - CHROMATURIA [None]
  - DIZZINESS [None]
  - HAEMOLYTIC ANAEMIA [None]
  - PLATELET COUNT DECREASED [None]
  - WHITE BLOOD CELL COUNT INCREASED [None]
